FAERS Safety Report 11964813 (Version 1)
Quarter: 2016Q1

REPORT INFORMATION
  Report Type: Spontaneous
  Country: US (occurrence: None)
  Receive Date: 20160125
  Receipt Date: 20160125
  Transmission Date: 20160526
  Serious: Yes (Other)
  Sender: FDA-Public Use
  Company Number: None

PATIENT
  Age: 66 Year
  Sex: Male
  Weight: 104.33 kg

DRUGS (14)
  1. DESONIDE CREAM [Concomitant]
  2. AZO [Concomitant]
     Active Substance: PHENAZOPYRIDINE HYDROCHLORIDE
  3. MELOXICAM. [Concomitant]
     Active Substance: MELOXICAM
  4. PHENAZOPYRIDINE HYDROCHLORIDE. [Concomitant]
     Active Substance: PHENAZOPYRIDINE HYDROCHLORIDE
  5. OCUVITE [Concomitant]
     Active Substance: VITAMINS
  6. 100% NATURALO PSYLLIUM HUS FIBER [Concomitant]
  7. TAMSULOSIN CAP 0.4 MG CITRON PHARMA [Suspect]
     Active Substance: TAMSULOSIN
     Indication: PROSTATOMEGALY
     Dosage: 1 CAPSULE, TWICE DAILY, TAKEN BY MOUTH
     Dates: start: 20151020, end: 20160122
  8. CINNAMON. [Concomitant]
     Active Substance: CINNAMON
  9. DUTASTERIDE CAP 0.5 MG PHARMACEUTICS [Suspect]
     Active Substance: DUTASTERIDE
     Indication: PROSTATOMEGALY
     Dosage: TAKEN BY MOUTH
     Dates: start: 20151010, end: 20160122
  10. DUTASTERIDE. [Concomitant]
     Active Substance: DUTASTERIDE
  11. PHENAZOPYRIDINE. [Concomitant]
     Active Substance: PHENAZOPYRIDINE
  12. TAMSULOSIN [Concomitant]
     Active Substance: TAMSULOSIN
  13. CENTRUM SILVER MULTIVITAMIN [Concomitant]
  14. ASPIRIN. [Concomitant]
     Active Substance: ASPIRIN

REACTIONS (1)
  - Salivary gland mucocoele [None]

NARRATIVE: CASE EVENT DATE: 20160107
